FAERS Safety Report 6074134-2 (Version None)
Quarter: 2009Q1

REPORT INFORMATION
  Report Type: 
  Country: None (occurrence: None)
  Receive Date: 20090211
  Receipt Date: 20090206
  Transmission Date: 20090719
  Serious: Yes (Hospitalization)
  Sender: FDA-Public Use
  Company Number: B0558612A

PATIENT
  Age: 58 Year
  Sex: Female

DRUGS (2)
  1. LAMICTAL [Suspect]
  2. TRYPTIZOL [Concomitant]

REACTIONS (8)
  - HEADACHE [None]
  - NAUSEA [None]
  - PRURITUS [None]
  - PYREXIA [None]
  - RASH [None]
  - SEPSIS [None]
  - THROMBOCYTOPENIA [None]
  - TRANSAMINASES INCREASED [None]
